FAERS Safety Report 8101793-2 (Version None)
Quarter: 2012Q1

REPORT INFORMATION
  Report Type: 
  Country: None (occurrence: None)
  Receive Date: 20120131
  Receipt Date: 20120124
  Transmission Date: 20120608
  Serious: Yes (Hospitalization)
  Sender: FDA-Public Use
  Company Number: PHHY2011AU111751

PATIENT
  Sex: Female

DRUGS (4)
  1. PREMARIN [Concomitant]
     Dosage: 0.625 MG, QD
  2. MODURETIC 5-50 [Concomitant]
     Dosage: UNK
  3. GILENYA [Suspect]
     Indication: MULTIPLE SCLEROSIS
     Dosage: 0.5 MG, UNK
     Route: 048
     Dates: start: 20111215, end: 20111215
  4. EFFEXOR [Concomitant]
     Dosage: 75 MG, QD

REACTIONS (1)
  - ATRIAL FIBRILLATION [None]
